FAERS Safety Report 17400988 (Version 1)
Quarter: 2020Q1

REPORT INFORMATION
  Report Type: Spontaneous
  Country: US (occurrence: US)
  Receive Date: 20200127
  Receipt Date: 20200127
  Transmission Date: 20200409
  Serious: No
  Sender: FDA-Public Use
  Company Number: None

PATIENT
  Sex: Male

DRUGS (15)
  1. CYPROHEPTAD [Concomitant]
  2. ALBUTEROL. [Concomitant]
     Active Substance: ALBUTEROL
  3. CAYSTON [Concomitant]
     Active Substance: AZTREONAM
  4. PEPTAMEN JR LIQ [Concomitant]
  5. AZITHROMYCIN ANHYDROUS. [Concomitant]
     Active Substance: AZITHROMYCIN ANHYDROUS
  6. AQUADEKS [Concomitant]
     Active Substance: MINERALS\VITAMINS
  7. XOLAIR [Suspect]
     Active Substance: OMALIZUMAB
     Dosage: ?          OTHER FREQUENCY:Q 14 DAYS;?
     Route: 058
     Dates: start: 20191207
  8. BETHKIS [Concomitant]
     Active Substance: TOBRAMYCIN
  9. VITAMIN D3 [Concomitant]
     Active Substance: CHOLECALCIFEROL
  10. PROVENTIL [Concomitant]
     Active Substance: ALBUTEROL
  11. BD SWAB REG PAD SNGL USE [Concomitant]
  12. PEPTAMEN JR LIQ [Concomitant]
  13. PULMOZYME [Concomitant]
     Active Substance: DORNASE ALFA
  14. OMEPRAZOLE. [Concomitant]
     Active Substance: OMEPRAZOLE
  15. SODIUM CHLOR [Concomitant]
     Active Substance: SODIUM CHLORIDE

REACTIONS (2)
  - Lung disorder [None]
  - Condition aggravated [None]
